FAERS Safety Report 18904847 (Version 1)
Quarter: 2021Q1

REPORT INFORMATION
  Report Type: Spontaneous
  Country: US (occurrence: US)
  Receive Date: 20210217
  Receipt Date: 20210217
  Transmission Date: 20210420
  Serious: Yes (Other)
  Sender: FDA-Public Use
  Company Number: None

PATIENT
  Age: 49 Year
  Sex: Female
  Weight: 78.75 kg

DRUGS (1)
  1. CHLORHEXIDINE [Suspect]
     Active Substance: CHLORHEXIDINE
     Indication: SURGERY

REACTIONS (6)
  - Skin burning sensation [None]
  - Skin weeping [None]
  - Rash [None]
  - Pruritus [None]
  - Oral mucosal exfoliation [None]
  - Skin exfoliation [None]
